FAERS Safety Report 21129220 (Version 2)
Quarter: 2022Q3

REPORT INFORMATION
  Report Type: Spontaneous
  Country: DE (occurrence: None)
  Receive Date: 20220725
  Receipt Date: 20220805
  Transmission Date: 20221027
  Serious: Yes (Other)
  Sender: FDA-Public Use
  Company Number: DE-ROCHE-2998827

PATIENT
  Age: 61 Year
  Sex: Female

DRUGS (7)
  1. ALECENSA [Suspect]
     Active Substance: ALECTINIB HYDROCHLORIDE
     Indication: Lung neoplasm malignant
     Route: 065
     Dates: start: 2020
  2. ALECENSA [Suspect]
     Active Substance: ALECTINIB HYDROCHLORIDE
     Dosage: 4 CAPSULES A 150 MG IN THE MORNING AND IN THE EVENING
     Route: 065
     Dates: start: 201909
  3. CISPLATIN [Suspect]
     Active Substance: CISPLATIN
     Indication: Lung neoplasm malignant
     Dosage: IN COMBINATION WITH VINORELBIN
     Route: 065
     Dates: start: 201801, end: 201801
  4. CARBOPLATIN [Suspect]
     Active Substance: CARBOPLATIN
     Indication: Lung neoplasm malignant
     Dosage: IN COMBINATION WITH VINORELBIN
     Route: 065
     Dates: start: 201801, end: 201801
  5. CARBOPLATIN [Suspect]
     Active Substance: CARBOPLATIN
     Dosage: MONOTHERAPY
     Route: 065
     Dates: start: 201801, end: 201801
  6. VINORELBINE [Suspect]
     Active Substance: VINORELBINE TARTRATE
     Indication: Lung neoplasm malignant
     Dosage: IN COMBINATION WITH CISPLATIN
     Route: 065
     Dates: start: 201801, end: 201801
  7. VINORELBINE [Suspect]
     Active Substance: VINORELBINE TARTRATE
     Dosage: IN COMBINATION WITH CARBOPLATIN
     Route: 065
     Dates: start: 201801, end: 201801

REACTIONS (6)
  - Osteonecrosis [Not Recovered/Not Resolved]
  - Tonsillitis [Not Recovered/Not Resolved]
  - Gastritis [Unknown]
  - Decreased appetite [Unknown]
  - Nausea [Unknown]
  - Abdominal pain upper [Unknown]

NARRATIVE: CASE EVENT DATE: 20220725
